FAERS Safety Report 4666198-5 (Version None)
Quarter: 2005Q2

REPORT INFORMATION
  Report Type: 
  Country: None (occurrence: None)
  Receive Date: 20050518
  Receipt Date: 20050505
  Transmission Date: 20051028
  Serious: Yes (Death, Hospitalization)
  Sender: FDA-Public Use
  Company Number: 2005-05-0219

PATIENT
  Age: 72 Year
  Sex: Female

DRUGS (8)
  1. AFRIN [Suspect]
     Indication: NASAL CONGESTION
     Dosage: NASAL SPRAY
     Route: 045
     Dates: start: 20050424, end: 20050427
  2. AERIUS (DESLORATADINE) [Suspect]
     Dosage: ORAL
     Route: 048
  3. TEGRETOL [Concomitant]
  4. VENTOLIN [Concomitant]
  5. ATROVENT [Concomitant]
  6. PULMICORT [Concomitant]
  7. SCOPOLAMINE [Concomitant]
  8. PHENOBARBITAL [Concomitant]

REACTIONS (1)
  - DEATH [None]
